FAERS Safety Report 18181327 (Version 3)
Quarter: 2021Q3

REPORT INFORMATION
  Report Type: Spontaneous
  Country: US (occurrence: US)
  Receive Date: 20200821
  Receipt Date: 20210709
  Transmission Date: 20211014
  Serious: Yes (Other)
  Sender: FDA-Public Use
  Company Number: US-ASTRAZENECA-2018SF25912

PATIENT
  Age: 660 Month
  Sex: Female
  Weight: 102.1 kg

DRUGS (45)
  1. NEXIUM [Suspect]
     Active Substance: ESOMEPRAZOLE MAGNESIUM
     Indication: GASTROOESOPHAGEAL REFLUX DISEASE
     Route: 048
     Dates: start: 2007, end: 2015
  2. NEXIUM [Suspect]
     Active Substance: ESOMEPRAZOLE MAGNESIUM
     Indication: SMALL INTESTINE ULCER
     Route: 048
     Dates: start: 20080124, end: 20151008
  3. PREVACID [Suspect]
     Active Substance: LANSOPRAZOLE
     Indication: GASTROOESOPHAGEAL REFLUX DISEASE
     Route: 065
     Dates: start: 2007, end: 2010
  4. DICYCLOMINE [Concomitant]
     Active Substance: DICYCLOMINE HYDROCHLORIDE
  5. CLOBETASOL [Concomitant]
     Active Substance: CLOBETASOL
  6. PREDNISOLONE. [Concomitant]
     Active Substance: PREDNISOLONE
  7. NABUMETONE. [Concomitant]
     Active Substance: NABUMETONE
  8. PROMETHAZINE [Concomitant]
     Active Substance: PROMETHAZINE HYDROCHLORIDE
  9. NEXIUM [Suspect]
     Active Substance: ESOMEPRAZOLE MAGNESIUM
     Indication: GASTROOESOPHAGEAL REFLUX DISEASE
     Dosage: GENERIC
     Route: 065
  10. TOPIRAMATE. [Concomitant]
     Active Substance: TOPIRAMATE
  11. GABAPENTIN. [Concomitant]
     Active Substance: GABAPENTIN
  12. PROGESTERONE. [Concomitant]
     Active Substance: PROGESTERONE
  13. NEXIUM [Suspect]
     Active Substance: ESOMEPRAZOLE MAGNESIUM
     Indication: GASTROOESOPHAGEAL REFLUX DISEASE
     Route: 048
     Dates: start: 2010, end: 2015
  14. PREVACID [Suspect]
     Active Substance: LANSOPRAZOLE
     Indication: GASTROOESOPHAGEAL REFLUX DISEASE
     Route: 065
     Dates: start: 2007, end: 2015
  15. HYDROCHLOROTHIAZIDE. [Concomitant]
     Active Substance: HYDROCHLOROTHIAZIDE
     Indication: SWELLING
  16. MELOXICAM. [Concomitant]
     Active Substance: MELOXICAM
     Indication: PAIN IN EXTREMITY
  17. CLONAZEPAM. [Concomitant]
     Active Substance: CLONAZEPAM
  18. ZOLPIDEM [Concomitant]
     Active Substance: ZOLPIDEM TARTRATE
  19. SENNA [Concomitant]
     Active Substance: SENNA LEAF\SENNOSIDES\SENNOSIDES A AND B
  20. FOLIC ACID. [Concomitant]
     Active Substance: FOLIC ACID
  21. FAMOTIDINE. [Suspect]
     Active Substance: FAMOTIDINE
     Indication: GASTROOESOPHAGEAL REFLUX DISEASE
     Route: 065
     Dates: start: 2016, end: 2016
  22. BACLOFEN. [Concomitant]
     Active Substance: BACLOFEN
  23. AMOX/CLAV [Concomitant]
     Active Substance: AMOXICILLIN\CLAVULANATE POTASSIUM
  24. NEXIUM [Suspect]
     Active Substance: ESOMEPRAZOLE MAGNESIUM
     Indication: SMALL INTESTINE ULCER
     Route: 048
     Dates: start: 2010, end: 2015
  25. PREVACID [Suspect]
     Active Substance: LANSOPRAZOLE
     Indication: SMALL INTESTINE ULCER
     Route: 065
     Dates: start: 2007, end: 2015
  26. PREVACID [Suspect]
     Active Substance: LANSOPRAZOLE
     Indication: GASTROOESOPHAGEAL REFLUX DISEASE
     Dosage: GENERIC
     Route: 065
  27. PREVACID [Suspect]
     Active Substance: LANSOPRAZOLE
     Indication: SMALL INTESTINE ULCER
     Dosage: GENERIC
     Route: 065
  28. ACETAMINOPHEN. [Concomitant]
     Active Substance: ACETAMINOPHEN
     Indication: PAIN IN EXTREMITY
  29. SUMATRIPTAN. [Concomitant]
     Active Substance: SUMATRIPTAN
  30. APAP/CODEINE [Concomitant]
     Active Substance: ACETAMINOPHEN\CODEINE PHOSPHATE
  31. ONDANSETRON [Concomitant]
     Active Substance: ONDANSETRON
  32. PREVACID [Suspect]
     Active Substance: LANSOPRAZOLE
     Indication: SMALL INTESTINE ULCER
     Route: 065
     Dates: start: 2007, end: 2010
  33. FAMOTIDINE. [Suspect]
     Active Substance: FAMOTIDINE
     Indication: SMALL INTESTINE ULCER
     Route: 065
     Dates: start: 2016, end: 2016
  34. LISINOPRIL. [Concomitant]
     Active Substance: LISINOPRIL
     Indication: RENAL DISORDER
     Dates: start: 2017
  35. TAGAMET [Concomitant]
     Active Substance: CIMETIDINE
  36. PROAIR HFA [Concomitant]
     Active Substance: ALBUTEROL SULFATE
  37. CETRIZINE [Concomitant]
     Active Substance: CETIRIZINE HYDROCHLORIDE
  38. VENLAFAXINE [Concomitant]
     Active Substance: VENLAFAXINE HYDROCHLORIDE
  39. NEXIUM [Suspect]
     Active Substance: ESOMEPRAZOLE MAGNESIUM
     Indication: SMALL INTESTINE ULCER
     Route: 048
     Dates: start: 2007, end: 2015
  40. NEXIUM [Suspect]
     Active Substance: ESOMEPRAZOLE MAGNESIUM
     Indication: GASTROOESOPHAGEAL REFLUX DISEASE
     Route: 048
     Dates: start: 20080124, end: 20151008
  41. NEXIUM [Suspect]
     Active Substance: ESOMEPRAZOLE MAGNESIUM
     Indication: SMALL INTESTINE ULCER
     Dosage: GENERIC
     Route: 065
  42. FAMOTIDINE. [Concomitant]
     Active Substance: FAMOTIDINE
     Indication: ABDOMINAL DISCOMFORT
     Dates: start: 2017
  43. VITAMIN D3 [Concomitant]
     Active Substance: CHOLECALCIFEROL
  44. NAPROXEN. [Concomitant]
     Active Substance: NAPROXEN
  45. AZITHROMYCIN ANHYDROUS. [Concomitant]
     Active Substance: AZITHROMYCIN ANHYDROUS

REACTIONS (5)
  - Renal hypertension [Not Recovered/Not Resolved]
  - Nephrogenic anaemia [Unknown]
  - Chronic kidney disease-mineral and bone disorder [Unknown]
  - Chronic kidney disease [Not Recovered/Not Resolved]
  - Tubulointerstitial nephritis [Unknown]

NARRATIVE: CASE EVENT DATE: 201508
